FAERS Safety Report 7451558-X (Version None)
Quarter: 2011Q2

REPORT INFORMATION
  Report Type: 
  Country: None (occurrence: None)
  Receive Date: 20110502
  Receipt Date: 20100813
  Transmission Date: 20111010
  Serious: No
  Sender: FDA-Public Use
  Company Number: US-ASTRAZENECA-2004UW26015

PATIENT
  Sex: Male
  Weight: 77.1 kg

DRUGS (7)
  1. PROCARDIA [Concomitant]
  2. CORGARD [Concomitant]
  3. NEXIUM [Suspect]
     Indication: GASTROOESOPHAGEAL REFLUX DISEASE
     Route: 048
     Dates: start: 20041101
  4. LIPITOR [Concomitant]
  5. COUMADIN [Concomitant]
  6. PRILOSEC [Suspect]
     Route: 048
  7. PLAVIX [Concomitant]

REACTIONS (3)
  - ABDOMINAL PAIN [None]
  - DRUG INEFFECTIVE [None]
  - DRUG DOSE OMISSION [None]
